FAERS Safety Report 6121763-3 (Version None)
Quarter: 2009Q1

REPORT INFORMATION
  Report Type: 
  Country: None (occurrence: None)
  Receive Date: 20090317
  Receipt Date: 20090309
  Transmission Date: 20090719
  Serious: Yes (Other)
  Sender: FDA-Public Use
  Company Number: DE-B.I. PHARMACEUTICALS,INC./RIDGEFIELD-2009-DE-02156DE

PATIENT
  Sex: Female
  Weight: 0.785 kg

DRUGS (8)
  1. MICARDIS [Suspect]
     Indication: DRUG EXPOSURE DURING PREGNANCY
     Dosage: 40MG
     Route: 064
  2. EUTHYROX [Concomitant]
     Indication: DRUG EXPOSURE DURING PREGNANCY
     Dosage: 50MCG
     Route: 064
  3. DECORTIN H 10 [Concomitant]
     Indication: DRUG EXPOSURE DURING PREGNANCY
     Dosage: 1ANZ
     Route: 064
  4. INNOHEP 3.500 INJECTION [Concomitant]
     Indication: DRUG EXPOSURE DURING PREGNANCY
     Route: 064
     Dates: end: 20090107
  5. VITAMIN FOLIO [Concomitant]
     Indication: DRUG EXPOSURE DURING PREGNANCY
     Route: 064
  6. VITAMIN COMPLEX [Concomitant]
     Indication: DRUG EXPOSURE DURING PREGNANCY
     Route: 064
  7. MAGNESIUM SULFATE [Concomitant]
     Indication: DRUG EXPOSURE DURING PREGNANCY
     Route: 064
  8. CALCIUM [Concomitant]
     Indication: DRUG EXPOSURE DURING PREGNANCY
     Route: 064

REACTIONS (2)
  - PREMATURE BABY [None]
  - UMBILICAL CORD ABNORMALITY [None]
